FAERS Safety Report 14120852 (Version 2)
Quarter: 2017Q4

REPORT INFORMATION
  Report Type: Report from Study
  Country: FR (occurrence: FR)
  Receive Date: 20171024
  Receipt Date: 20171129
  Transmission Date: 20180321
  Serious: Yes (Death, Hospitalization, Other)
  Sender: FDA-Public Use
  Company Number: FR-BAYER-2016-212898

PATIENT
  Age: 72 Year
  Sex: Female
  Weight: 67 kg

DRUGS (17)
  1. MOVICOL [Concomitant]
     Active Substance: POLYETHYLENE GLYCOL 3350\POTASSIUM CHLORIDE\SODIUM BICARBONATE\SODIUM CHLORIDE
     Dosage: UNK
     Dates: start: 20161010
  2. STIVARGA [Suspect]
     Active Substance: REGORAFENIB
     Indication: COLORECTAL CANCER METASTATIC
     Dosage: 120 MG, QD
     Route: 048
     Dates: start: 20160727, end: 20161121
  3. EXEMESTANE. [Concomitant]
     Active Substance: EXEMESTANE
     Dosage: UNK
     Dates: start: 2014
  4. DOLIPRANE [Concomitant]
     Active Substance: ACETAMINOPHEN
     Dosage: 3 G, QD
     Dates: start: 20161006
  5. OXYNORM [Concomitant]
     Active Substance: OXYCODONE HYDROCHLORIDE
     Dosage: UNK
     Dates: start: 20161010
  6. PARIET [Concomitant]
     Active Substance: RABEPRAZOLE SODIUM
     Dosage: UNK
     Dates: start: 2012
  7. TEMESTA (LORAZEPAM) [Concomitant]
     Active Substance: LORAZEPAM
     Dosage: UNK
     Dates: start: 2012
  8. ACTISKENAN [Concomitant]
     Active Substance: MORPHINE SULFATE
     Dosage: 5 MG, QD
     Dates: start: 20161006, end: 20161010
  9. INEXIUM [Concomitant]
     Active Substance: ESOMEPRAZOLE
     Dosage: 80 MG, QD
     Dates: start: 20161010
  10. OXYCONTIN [Concomitant]
     Active Substance: OXYCODONE HYDROCHLORIDE
     Dosage: 20 MG, QD
     Dates: start: 20161017
  11. BEPANTHEN [CHLORHEXIDINE HYDROCHLORIDE,DEXPANTHENOL] [Concomitant]
     Dosage: UNK
     Dates: start: 20161025, end: 20161102
  12. SOLUPRED [PREDNISOLONE] [Concomitant]
     Active Substance: PREDNISOLONE
     Dosage: 1 MG/KG, QD
     Dates: start: 20161006, end: 20161009
  13. LOXEN (NICARDIPINE HYDROCHLORIDE) [Concomitant]
     Active Substance: NICARDIPINE HYDROCHLORIDE
     Dosage: 50 MG, QD
     Dates: start: 20160824
  14. SPASFON [Concomitant]
     Active Substance: PHLOROGLUCINOL\1,3,5-TRIMETHOXYBENZENE
     Dosage: UNK
     Dates: start: 20161006
  15. VOGALENE [Concomitant]
     Active Substance: METOPIMAZINE
     Dosage: 22.5 MG, QD
     Dates: start: 20161010
  16. SOLUPRED [PREDNISOLONE] [Concomitant]
     Active Substance: PREDNISOLONE
     Dosage: 80 MG, QD
     Dates: start: 20161010
  17. BASDENE [Concomitant]
     Active Substance: BENZYLTHIOURACIL
     Dosage: UNK
     Dates: start: 1976

REACTIONS (2)
  - Small intestinal obstruction [Recovered/Resolved]
  - Colonic fistula [Not Recovered/Not Resolved]

NARRATIVE: CASE EVENT DATE: 20161024
